FAERS Safety Report 16137515 (Version 1)
Quarter: 2019Q2

REPORT INFORMATION
  Report Type: Spontaneous
  Country: HU (occurrence: HU)
  Receive Date: 20190401
  Receipt Date: 20190401
  Transmission Date: 20190711
  Serious: Yes (Other)
  Sender: FDA-Public Use
  Company Number: HU-ACCORD-115706

PATIENT
  Age: 23 Year
  Sex: Female

DRUGS (16)
  1. ARIPIPRAZOLE. [Suspect]
     Active Substance: ARIPIPRAZOLE
     Indication: PSYCHOMOTOR SKILLS IMPAIRED
     Dosage: ALSO RECEIVED IN 2014
     Route: 065
  2. HALOPERIDOL. [Suspect]
     Active Substance: HALOPERIDOL
     Indication: SCHIZOAFFECTIVE DISORDER
     Route: 065
  3. ARIPIPRAZOLE. [Suspect]
     Active Substance: ARIPIPRAZOLE
     Indication: SCHIZOAFFECTIVE DISORDER
     Route: 065
  4. PALIPERIDONE/PALIPERIDONE PALMITATE [Concomitant]
     Indication: PSYCHOMOTOR SKILLS IMPAIRED
     Route: 065
     Dates: start: 2014, end: 201411
  5. ARIPIPRAZOLE. [Suspect]
     Active Substance: ARIPIPRAZOLE
     Indication: ENCEPHALITIS AUTOIMMUNE
     Route: 065
     Dates: start: 2015, end: 2015
  6. OLANZAPINE. [Suspect]
     Active Substance: OLANZAPINE
     Indication: PSYCHOMOTOR SKILLS IMPAIRED
     Route: 065
     Dates: start: 2014, end: 2014
  7. CLOZAPINE. [Concomitant]
     Active Substance: CLOZAPINE
     Indication: SCHIZOPHRENIA
     Route: 065
     Dates: start: 201411, end: 201505
  8. METHYLPREDNISOLONE. [Suspect]
     Active Substance: METHYLPREDNISOLONE
     Indication: ENCEPHALITIS AUTOIMMUNE
     Route: 065
     Dates: start: 201412, end: 201505
  9. AMISULPRIDE [Concomitant]
     Active Substance: AMISULPRIDE
     Indication: SCHIZOPHRENIA
     Route: 065
     Dates: start: 201411, end: 201412
  10. HALOPERIDOL. [Suspect]
     Active Substance: HALOPERIDOL
     Indication: PSYCHOTIC DISORDER
     Route: 065
  11. AZATHIOPRINE. [Concomitant]
     Active Substance: AZATHIOPRINE
     Indication: IMMUNOSUPPRESSANT DRUG THERAPY
     Dosage: ALSO RECEIVED FROM JAN-2015 TO JUN-2016
     Route: 065
     Dates: end: 201605
  12. ARIPIPRAZOLE. [Suspect]
     Active Substance: ARIPIPRAZOLE
     Indication: PSYCHOTIC DISORDER
     Route: 065
  13. AZATHIOPRINE. [Concomitant]
     Active Substance: AZATHIOPRINE
     Indication: ENCEPHALITIS AUTOIMMUNE
     Route: 065
     Dates: start: 201501, end: 201606
  14. HALOPERIDOL. [Suspect]
     Active Substance: HALOPERIDOL
     Indication: PSYCHOTIC DISORDER
     Route: 065
  15. LEVOTHYROXINE. [Concomitant]
     Active Substance: LEVOTHYROXINE
     Indication: PRODUCT USED FOR UNKNOWN INDICATION
     Route: 065
  16. ARIPIPRAZOLE. [Concomitant]
     Active Substance: ARIPIPRAZOLE
     Indication: ENCEPHALITIS AUTOIMMUNE
     Route: 065
     Dates: start: 2015, end: 2015

REACTIONS (7)
  - Drug ineffective [Unknown]
  - Skin striae [Recovered/Resolved]
  - Akathisia [Unknown]
  - Extrapyramidal disorder [Unknown]
  - Face oedema [Recovered/Resolved]
  - Amenorrhoea [Recovered/Resolved]
  - Weight increased [Recovered/Resolved]

NARRATIVE: CASE EVENT DATE: 2014
